FAERS Safety Report 6911821-5 (Version None)
Quarter: 2010Q3

REPORT INFORMATION
  Report Type: 
  Country: None (occurrence: None)
  Receive Date: 20100806
  Receipt Date: 20070808
  Transmission Date: 20110219
  Serious: Yes (Other)
  Sender: FDA-Public Use
  Company Number: US-PFIZER INC-2007066024

PATIENT
  Sex: Male
  Weight: 97.5 kg

DRUGS (4)
  1. LOPID [Suspect]
     Indication: HYPERTRIGLYCERIDAEMIA
     Route: 048
     Dates: start: 20020301
  2. CRESTOR [Concomitant]
  3. METOPROLOL [Concomitant]
  4. ACETYLSALICYLIC ACID SRT [Concomitant]

REACTIONS (2)
  - COLITIS [None]
  - GALLBLADDER DISORDER [None]
